FAERS Safety Report 10259837 (Version 2)
Quarter: 2014Q3

REPORT INFORMATION
  Report Type: Spontaneous
  Country: US (occurrence: US)
  Receive Date: 20140625
  Receipt Date: 20140709
  Transmission Date: 20150326
  Serious: Yes (Hospitalization)
  Sender: FDA-Public Use
  Company Number: US-GLAXOSMITHKLINE-A1077707A

PATIENT
  Age: 69 Year
  Sex: Female

DRUGS (8)
  1. ALBUTEROL/IPRATROPIUM [Concomitant]
     Active Substance: ALBUTEROL\IPRATROPIUM
  2. SYNTHROID [Concomitant]
     Active Substance: LEVOTHYROXINE SODIUM
  3. NIASPAN [Concomitant]
     Active Substance: NIACIN
  4. DIOVAN [Concomitant]
     Active Substance: VALSARTAN
  5. LIPITOR [Concomitant]
     Active Substance: ATORVASTATIN CALCIUM
  6. COREG [Concomitant]
     Active Substance: CARVEDILOL
  7. FENOFIBRATE. [Concomitant]
     Active Substance: FENOFIBRATE
  8. ADVAIR HFA [Suspect]
     Active Substance: FLUTICASONE PROPIONATE\SALMETEROL XINAFOATE
     Indication: CHRONIC OBSTRUCTIVE PULMONARY DISEASE
     Dosage: 1PUFF TWICE PER DAY
     Route: 055
     Dates: start: 2001

REACTIONS (10)
  - Lung operation [Unknown]
  - Hip surgery [Unknown]
  - Malaise [Recovered/Resolved]
  - Pyrexia [Recovered/Resolved]
  - Fall [Unknown]
  - Investigation [Recovered/Resolved]
  - Expired product administered [Unknown]
  - Hip fracture [Unknown]
  - Lung disorder [Unknown]
  - Chronic obstructive pulmonary disease [Recovered/Resolved]

NARRATIVE: CASE EVENT DATE: 2002
